FAERS Safety Report 6300970-0 (Version None)
Quarter: 2009Q3

REPORT INFORMATION
  Report Type: 
  Country: None (occurrence: None)
  Receive Date: 20090807
  Receipt Date: 20090727
  Transmission Date: 20100115
  Serious: Yes (Hospitalization)
  Sender: FDA-Public Use
  Company Number: CA-JNJFOC-20090708643

PATIENT
  Sex: Male
  Weight: 82 kg

DRUGS (3)
  1. REMICADE [Suspect]
     Dosage: THE PATIENT RECEIVED 3 INDUCTION DOSES BETWEEN 05-JUN-2009 AND 16-JUL-2009.
     Route: 042
  2. REMICADE [Suspect]
     Route: 042
  3. REMICADE [Suspect]
     Indication: COLITIS ULCERATIVE
     Route: 042

REACTIONS (6)
  - ACNE [None]
  - BLOOD POTASSIUM DECREASED [None]
  - BLOOD PRESSURE INCREASED [None]
  - HYPERHIDROSIS [None]
  - NAUSEA [None]
  - SENSE OF OPPRESSION [None]
